FAERS Safety Report 5268356-8 (Version None)
Quarter: 2007Q1

REPORT INFORMATION
  Report Type: 
  Country: None (occurrence: None)
  Receive Date: 20070313
  Receipt Date: 20070301
  Transmission Date: 20070707
  Serious: Yes (Hospitalization)
  Sender: FDA-Public Use
  Company Number: 2007BI003032

PATIENT
  Age: 35 Year
  Sex: Male

DRUGS (16)
  1. NATALIZUMAB [Suspect]
     Indication: MULTIPLE SCLEROSIS
     Dosage: 300 MG; QM; IV
     Route: 042
     Dates: start: 20061102, end: 20070208
  2. BACLOFEN [Concomitant]
  3. WELLBUTRIN [Concomitant]
  4. CIPRO [Concomitant]
  5. VANCOMYCIN [Concomitant]
  6. COLACE [Concomitant]
  7. NEURONTIN [Concomitant]
  8. LACTULOSE [Concomitant]
  9. METFORMIN HCL [Concomitant]
  10. DETROL [Concomitant]
  11. ADDERALL 10 [Concomitant]
  12. DUCOLAX [Concomitant]
  13. IBUPROFEN [Concomitant]
  14. MOM [Concomitant]
  15. VICODIN [Concomitant]
  16. TESTOSTERONE [Concomitant]

REACTIONS (7)
  - ASTHENIA [None]
  - CELLULITIS [None]
  - FALL [None]
  - INFECTION [None]
  - INJURY [None]
  - JOINT SPRAIN [None]
  - MOBILITY DECREASED [None]
